FAERS Safety Report 9969885 (Version 1)
Quarter: 2014Q1

REPORT INFORMATION
  Report Type: Spontaneous
  Country: US (occurrence: US)
  Receive Date: 20140306
  Receipt Date: 20140306
  Transmission Date: 20141002
  Serious: Yes (Hospitalization, Other)
  Sender: FDA-Public Use
  Company Number: US-JNJFOC-20140217531

PATIENT
  Sex: Male

DRUGS (4)
  1. XARELTO [Suspect]
     Indication: THROMBOSIS PROPHYLAXIS
     Route: 048
     Dates: start: 201211
  2. XARELTO [Suspect]
     Indication: THROMBOSIS PROPHYLAXIS
     Route: 048
     Dates: start: 20131204
  3. XARELTO [Suspect]
     Indication: KNEE OPERATION
     Route: 048
     Dates: start: 201211
  4. XARELTO [Suspect]
     Indication: KNEE OPERATION
     Route: 048
     Dates: start: 20131204

REACTIONS (5)
  - Thrombosis [Recovered/Resolved]
  - Staphylococcal infection [Recovered/Resolved]
  - Pain in extremity [Unknown]
  - Local swelling [Unknown]
  - Inappropriate schedule of drug administration [Unknown]
